FAERS Safety Report 5665099-3 (Version None)
Quarter: 2008Q1

REPORT INFORMATION
  Report Type: 
  Country: None (occurrence: None)
  Receive Date: 20080314
  Receipt Date: 20031208
  Transmission Date: 20080703
  Serious: No
  Sender: FDA-Public Use
  Company Number: US-ABBOTT-03P-163-0244253-00

PATIENT
  Sex: Female
  Weight: 93.07 kg

DRUGS (7)
  1. HUMIRA [Suspect]
     Indication: JUVENILE ARTHRITIS
     Route: 058
     Dates: start: 20030422
  2. ROSIGLITAZONE MALEATE [Concomitant]
     Indication: DIABETES MELLITUS
  3. DEFLAZACORT [Concomitant]
     Indication: DIABETES MELLITUS
  4. BUCINDOLOL HYDROCHLORIDE [Concomitant]
     Indication: JUVENILE ARTHRITIS
  5. LEFLUNOMIDE [Concomitant]
     Indication: JUVENILE ARTHRITIS
     Dates: start: 20030101
  6. VITAMIN CAP [Concomitant]
  7. ALBUTEROL [Concomitant]
     Indication: ASTHMA
     Route: 055

REACTIONS (14)
  - BLOOD CREATINE PHOSPHOKINASE INCREASED [None]
  - BLOOD PRESSURE INCREASED [None]
  - CHEST PAIN [None]
  - DIZZINESS [None]
  - DYSSTASIA [None]
  - ELECTROCARDIOGRAM ABNORMAL [None]
  - FATIGUE [None]
  - HEART RATE INCREASED [None]
  - LABYRINTHITIS [None]
  - MUSCULOSKELETAL PAIN [None]
  - MYOGLOBIN BLOOD INCREASED [None]
  - PAIN IN EXTREMITY [None]
  - VISION BLURRED [None]
  - VOMITING [None]
